FAERS Safety Report 16641517 (Version 1)
Quarter: 2019Q3

REPORT INFORMATION
  Report Type: Spontaneous
  Country: DK (occurrence: DK)
  Receive Date: 20190729
  Receipt Date: 20190729
  Transmission Date: 20191004
  Serious: Yes (Hospitalization, Other)
  Sender: FDA-Public Use
  Company Number: DK-BRISTOL-MYERS SQUIBB COMPANY-BMS-2019-072532

PATIENT
  Age: 82 Year
  Sex: Female
  Weight: 66 kg

DRUGS (3)
  1. METOPROLOL. [Concomitant]
     Active Substance: METOPROLOL
     Indication: HYPERTENSION
     Dosage: 50 MILLIGRAM, PER DAY
     Route: 048
     Dates: start: 2010
  2. SIMVASTATIN. [Concomitant]
     Active Substance: SIMVASTATIN
     Indication: HYPERCHOLESTEROLAEMIA
     Dosage: 40 MILLIGRAM, PER DAY
     Route: 048
     Dates: start: 2014
  3. ELIQUIS [Suspect]
     Active Substance: APIXABAN
     Indication: CEREBRAL THROMBOSIS
     Dosage: 5 MILLIGRAM, PER DAY
     Route: 048
     Dates: start: 2014, end: 201811

REACTIONS (3)
  - Thrombocytopenia [Recovering/Resolving]
  - Haemorrhage urinary tract [Recovered/Resolved]
  - Gastrointestinal haemorrhage [Unknown]

NARRATIVE: CASE EVENT DATE: 201710
